FAERS Safety Report 7831749-6 (Version None)
Quarter: 2011Q4

REPORT INFORMATION
  Report Type: 
  Country: None (occurrence: None)
  Receive Date: 20111021
  Receipt Date: 20111015
  Transmission Date: 20120403
  Serious: Yes (Death)
  Sender: FDA-Public Use
  Company Number: US-CELGENEUS-163-21880-11092707

PATIENT
  Sex: Female
  Weight: 63.106 kg

DRUGS (17)
  1. LANTUS [Concomitant]
     Route: 065
  2. FISH OIL [Concomitant]
     Dosage: 1
     Route: 048
     Dates: start: 20010101
  3. ALPRAZOLAM [Concomitant]
     Route: 048
     Dates: start: 20110101
  4. LEVAQUIN [Concomitant]
     Route: 048
     Dates: start: 20110714, end: 20110723
  5. FOLIC ACID [Concomitant]
     Dosage: 400 MILLIGRAM
     Route: 048
     Dates: start: 20090101
  6. SERTRALINE HYDROCHLORIDE [Concomitant]
     Dosage: 50 MILLIGRAM
     Route: 048
     Dates: start: 20110101
  7. REVLIMID [Suspect]
  8. ASPIRIN [Concomitant]
     Dosage: 81 MILLIGRAM
     Route: 048
     Dates: start: 19800101
  9. CALCIUM/D [Concomitant]
     Dosage: 600/5000
     Route: 048
     Dates: start: 20090101
  10. ANTIFUNGALS [Concomitant]
     Route: 065
     Dates: start: 20110901, end: 20110901
  11. REVLIMID [Suspect]
     Indication: MYELODYSPLASTIC SYNDROME
     Dosage: 10 MILLIGRAM
     Route: 048
     Dates: start: 20110617, end: 20110912
  12. PLAVIX [Concomitant]
     Dosage: 75 MILLIGRAM
     Route: 048
     Dates: start: 20090101
  13. ATENOLOL [Concomitant]
     Dosage: 50 MILLIGRAM
     Route: 048
     Dates: start: 19800101
  14. AMLODIPINE [Concomitant]
     Dosage: 10 MILLIGRAM
     Route: 048
     Dates: start: 20090101
  15. M.V.I. [Concomitant]
     Dosage: 1
     Route: 048
     Dates: start: 20090101
  16. METFORMIN HCL [Concomitant]
     Dosage: 500 MILLIGRAM
     Route: 065
  17. NORVASC [Concomitant]
     Dosage: 2.5 MILLIGRAM
     Route: 065

REACTIONS (4)
  - PNEUMONIA [None]
  - MYELODYSPLASTIC SYNDROME [None]
  - CARDIAC FAILURE [None]
  - ATRIAL FIBRILLATION [None]
